FAERS Safety Report 5882002-1 (Version None)
Quarter: 2008Q3

REPORT INFORMATION
  Report Type: 
  Country: None (occurrence: None)
  Receive Date: 20080912
  Receipt Date: 20080722
  Transmission Date: 20090109
  Serious: No
  Sender: FDA-Public Use
  Company Number: US-ABBOTT-08P-163-0464743-00

PATIENT
  Sex: Male

DRUGS (2)
  1. HUMIRA [Suspect]
     Indication: PSORIATIC ARTHROPATHY
     Route: 058
     Dates: start: 20080617
  2. HUMIRA [Suspect]
     Indication: PSORIASIS

REACTIONS (5)
  - ARTHRITIS [None]
  - GASTRIC DISORDER [None]
  - HEADACHE [None]
  - SWELLING [None]
  - VOMITING [None]
